FAERS Safety Report 7463688-7 (Version None)
Quarter: 2011Q2

REPORT INFORMATION
  Report Type: 
  Country: None (occurrence: None)
  Receive Date: 20110506
  Receipt Date: 20110427
  Transmission Date: 20111010
  Serious: Yes (Other)
  Sender: FDA-Public Use
  Company Number: US-ROCHE-734324

PATIENT
  Sex: Male
  Weight: 68 kg

DRUGS (1)
  1. ACCUTANE [Suspect]
     Indication: ACNE
     Route: 065
     Dates: start: 19910101, end: 19910401

REACTIONS (6)
  - GASTROINTESTINAL INJURY [None]
  - COLITIS ULCERATIVE [None]
  - ANXIETY [None]
  - DEPRESSION [None]
  - INTESTINAL HAEMORRHAGE [None]
  - ARTHRITIS [None]
